FAERS Safety Report 5962488-4 (Version None)
Quarter: 2008Q4

REPORT INFORMATION
  Report Type: 
  Country: None (occurrence: None)
  Receive Date: 20081121
  Receipt Date: 20081103
  Transmission Date: 20090506
  Serious: Yes (Other)
  Sender: FDA-Public Use
  Company Number: FR-PFIZER INC-2008086621

PATIENT
  Sex: Female
  Weight: 62 kg

DRUGS (1)
  1. SUTENT [Suspect]
     Indication: RENAL CANCER
     Route: 048
     Dates: start: 20080204

REACTIONS (5)
  - APHONIA [None]
  - DYSPHAGIA [None]
  - DYSPNOEA [None]
  - LOCALISED INFECTION [None]
  - MUCOSAL INFLAMMATION [None]
